FAERS Safety Report 11550074 (Version 2)
Quarter: 2015Q4

REPORT INFORMATION
  Report Type: Report from Study
  Country: US (occurrence: US)
  Receive Date: 20150924
  Receipt Date: 20151030
  Transmission Date: 20160304
  Serious: Yes (Death, Hospitalization, Other)
  Sender: FDA-Public Use
  Company Number: US-KADMON PHARMACEUTICALS, LLC-KAD201508-002950

PATIENT
  Age: 50 Year
  Sex: Male
  Weight: 79 kg

DRUGS (10)
  1. VIEKIRA PAK [Suspect]
     Active Substance: DASABUVIR\OMBITASVIR\PARITAPREVIR\RITONAVIR
     Indication: HEPATIC CIRRHOSIS
  2. CARVEDILOL. [Concomitant]
     Active Substance: CARVEDILOL
  3. XILXAN [Concomitant]
     Indication: HEPATIC FAILURE
  4. SPIRONOLACTONE. [Concomitant]
     Active Substance: SPIRONOLACTONE
  5. FOLIC ACID. [Concomitant]
     Active Substance: FOLIC ACID
  6. LYRICA [Concomitant]
     Active Substance: PREGABALIN
  7. VIEKIRA PAK [Suspect]
     Active Substance: DASABUVIR\OMBITASVIR\PARITAPREVIR\RITONAVIR
     Indication: HEPATITIS C
     Dosage: TABLET
     Route: 048
     Dates: start: 20150607, end: 20150829
  8. RIBAVIRIN 200 MG TABLETS [Suspect]
     Active Substance: RIBAVIRIN
     Indication: HEPATITIS C
     Dosage: 600 MG IN THE MORNING, 400 MG IN THE EVENING
     Route: 048
     Dates: start: 20150607, end: 20150827
  9. FUROSEMIDE. [Concomitant]
     Active Substance: FUROSEMIDE
  10. NEXIUM [Concomitant]
     Active Substance: ESOMEPRAZOLE MAGNESIUM

REACTIONS (13)
  - Fatigue [Unknown]
  - Amnesia [Unknown]
  - Renal disorder [Unknown]
  - Drug ineffective [Unknown]
  - Feeling cold [Unknown]
  - Disease progression [Unknown]
  - Haemorrhage [Fatal]
  - Hypersomnia [Unknown]
  - Skin discolouration [Unknown]
  - Hypotension [Unknown]
  - Cerebrovascular accident [Unknown]
  - Chronic hepatic failure [Unknown]
  - Blood pressure decreased [Unknown]

NARRATIVE: CASE EVENT DATE: 2015
